FAERS Safety Report 8456849-1 (Version None)
Quarter: 2012Q2

REPORT INFORMATION
  Report Type: 
  Country: None (occurrence: None)
  Receive Date: 20120621
  Receipt Date: 20120611
  Transmission Date: 20120825
  Serious: No
  Sender: FDA-Public Use
  Company Number: US-ASTRAZENECA-2012SE13837

PATIENT
  Age: 50 Year
  Sex: Female
  Weight: 60.8 kg

DRUGS (9)
  1. ALBUTEROL [Concomitant]
  2. CRESTOR [Suspect]
     Indication: BLOOD CHOLESTEROL INCREASED
     Route: 048
  3. PROAIR HFA [Concomitant]
     Indication: CHRONIC OBSTRUCTIVE PULMONARY DISEASE
  4. GABAPENTIN [Concomitant]
     Indication: NEURALGIA
  5. AMITRIPTYLINE HCL [Concomitant]
  6. XANAX [Concomitant]
  7. OMEPRAZOLE [Suspect]
     Indication: GASTROOESOPHAGEAL REFLUX DISEASE
     Route: 048
  8. ALPRAZOLAM [Concomitant]
     Indication: ANXIETY
  9. PROAIR HFA [Concomitant]
     Indication: ASTHMA

REACTIONS (17)
  - NASOPHARYNGITIS [None]
  - TEMPOROMANDIBULAR JOINT SYNDROME [None]
  - JOINT SWELLING [None]
  - DRUG DOSE OMISSION [None]
  - EAR PAIN [None]
  - GLUCOSE TOLERANCE IMPAIRED [None]
  - RHINITIS [None]
  - HEADACHE [None]
  - SINUS HEADACHE [None]
  - PAIN IN EXTREMITY [None]
  - CHRONIC OBSTRUCTIVE PULMONARY DISEASE [None]
  - ANXIETY [None]
  - GAIT DISTURBANCE [None]
  - OROPHARYNGEAL PAIN [None]
  - OEDEMA PERIPHERAL [None]
  - THROAT IRRITATION [None]
  - WEIGHT INCREASED [None]
